FAERS Safety Report 16068392 (Version 1)
Quarter: 2019Q1

REPORT INFORMATION
  Report Type: Report from Study
  Country: DE (occurrence: DE)
  Receive Date: 20190313
  Receipt Date: 20190313
  Transmission Date: 20190418
  Serious: Yes (Life-Threatening, Hospitalization, Other)
  Sender: FDA-Public Use
  Company Number: DE-TEVA-2019-DE-1021768

PATIENT
  Age: 77 Year
  Sex: Female
  Weight: 71 kg

DRUGS (10)
  1. PANTOPRAZOL [Concomitant]
     Active Substance: PANTOPRAZOLE SODIUM
  2. ATORVASTATIN [Concomitant]
     Active Substance: ATORVASTATIN
  3. CLOPIDOGREL [Suspect]
     Active Substance: CLOPIDOGREL BISULFATE
     Indication: ANTICOAGULANT THERAPY
     Dosage: 75 MG
     Route: 048
     Dates: start: 20170422, end: 20180413
  4. THIAMAZOL [Concomitant]
     Active Substance: METHIMAZOLE
  5. MARCUMAR [Suspect]
     Active Substance: PHENPROCOUMON
     Indication: ANTICOAGULANT THERAPY
     Route: 048
     Dates: start: 20150602
  6. TORASEMID [Concomitant]
     Active Substance: TORSEMIDE
  7. CANDESARTAN. [Concomitant]
     Active Substance: CANDESARTAN
  8. IRENAT [Concomitant]
     Active Substance: SODIUM PERCHLORATE
  9. METAMIZOL [Concomitant]
     Active Substance: METAMIZOLE SODIUM
  10. METOPROLOL. [Concomitant]
     Active Substance: METOPROLOL

REACTIONS (1)
  - Arterial haemorrhage [Recovered/Resolved]

NARRATIVE: CASE EVENT DATE: 20170621
